FAERS Safety Report 7341287-5 (Version None)
Quarter: 2011Q1

REPORT INFORMATION
  Report Type: 
  Country: None (occurrence: None)
  Receive Date: 20110309
  Receipt Date: 20110307
  Transmission Date: 20110831
  Serious: Yes (Hospitalization)
  Sender: FDA-Public Use
  Company Number: PHHY2011KR18603

PATIENT
  Sex: Male

DRUGS (11)
  1. NORVASC [Concomitant]
     Indication: HYPERTENSION
  2. TACROLIMUS [Concomitant]
     Dosage: UNK
     Dates: start: 20100419
  3. GASTER [Concomitant]
     Indication: ABDOMINAL PAIN UPPER
     Dosage: UNK
     Dates: start: 20100423
  4. STILNOX [Concomitant]
     Indication: INSOMNIA
     Dosage: UNK
     Dates: start: 20100525
  5. SIMULECT [Suspect]
     Dosage: 20 MG, UNK
     Route: 048
     Dates: start: 20100420, end: 20100424
  6. MAGNES [Concomitant]
  7. METFORMIN HCL [Concomitant]
     Indication: HYPERGLYCAEMIA
     Dosage: UNK
     Dates: start: 20100428
  8. PREDNISOLONE [Concomitant]
     Dosage: UNK
     Dates: start: 20100419
  9. DILATREND [Concomitant]
     Indication: HYPERTENSION
     Dosage: UNK
     Dates: start: 20100419
  10. MYCOPHENOLATE MOFETIL [Concomitant]
     Dosage: UNK
     Dates: start: 20100419
  11. AMARYL [Concomitant]
     Indication: HYPERGLYCAEMIA
     Dosage: UNK
     Dates: start: 20100504

REACTIONS (6)
  - SCROTAL SWELLING [None]
  - SCROTAL PAIN [None]
  - INSOMNIA [None]
  - SUBCUTANEOUS EMPHYSEMA [None]
  - HYPOMAGNESAEMIA [None]
  - ABDOMINAL PAIN UPPER [None]
